FAERS Safety Report 23907715 (Version 1)
Quarter: 2024Q2

REPORT INFORMATION
  Report Type: Report from Study
  Country: BR (occurrence: BR)
  Receive Date: 20240528
  Receipt Date: 20240528
  Transmission Date: 20240716
  Serious: Yes (Other)
  Sender: FDA-Public Use
  Company Number: BR-MYLANLABS-2024M1044917

PATIENT
  Sex: Female
  Weight: 50 kg

DRUGS (2)
  1. XALATAN [Suspect]
     Active Substance: LATANOPROST
     Indication: Glaucoma
     Dosage: 1 GTT DROPS
     Route: 047
  2. XALATAN [Suspect]
     Active Substance: LATANOPROST
     Dosage: 1 GTT DROPS
     Route: 047
     Dates: start: 20240419

REACTIONS (4)
  - Glaucoma [Unknown]
  - Cataract [Unknown]
  - Eye disorder [Unknown]
  - Multiple allergies [Unknown]
